FAERS Safety Report 16179048 (Version 1)
Quarter: 2019Q2

REPORT INFORMATION
  Report Type: Spontaneous
  Country: US (occurrence: US)
  Receive Date: 20190307
  Receipt Date: 20190307
  Transmission Date: 20190711
  Serious: Yes (Hospitalization, Disabling)
  Sender: FDA-Public Use
  Company Number: None

PATIENT
  Age: 78 Year
  Sex: Female
  Weight: 78.47 kg

DRUGS (10)
  1. PROLIA [Suspect]
     Active Substance: DENOSUMAB
     Indication: OSTEOPOROSIS
     Dosage: INJECTION EVERY 6 MONTHS
     Dates: start: 20160318, end: 20180321
  2. CELEXA [Concomitant]
     Active Substance: CITALOPRAM HYDROBROMIDE
  3. BOOST [Concomitant]
     Active Substance: DIETARY SUPPLEMENT
  4. ELIQUIS [Concomitant]
     Active Substance: APIXABAN
  5. DIGOXIN. [Concomitant]
     Active Substance: DIGOXIN
  6. JANUVIA [Concomitant]
     Active Substance: SITAGLIPTIN PHOSPHATE
  7. METFORMIN [Concomitant]
     Active Substance: METFORMIN HYDROCHLORIDE
  8. RAMIPRIL. [Concomitant]
     Active Substance: RAMIPRIL
  9. LIPITOR [Concomitant]
     Active Substance: ATORVASTATIN CALCIUM
  10. VITAMIN D NOS [Concomitant]
     Active Substance: VITAMIN D NOS

REACTIONS (2)
  - Fall [None]
  - Femur fracture [None]

NARRATIVE: CASE EVENT DATE: 20180505
